FAERS Safety Report 24091012 (Version 5)
Quarter: 2025Q4

REPORT INFORMATION
  Report Type: Report from Study
  Country: JP (occurrence: JP)
  Receive Date: 20240715
  Receipt Date: 20251107
  Transmission Date: 20260118
  Serious: Yes (Life-Threatening, Hospitalization, Other)
  Sender: PFIZER
  Company Number: JP-PFIZER INC-PV202400092226

PATIENT
  Age: 3 Year
  Sex: Male

DRUGS (20)
  1. SIROLIMUS [Suspect]
     Active Substance: SIROLIMUS
     Indication: Klippel-Trenaunay syndrome
     Dosage: IN 1 DAY
     Route: 048
     Dates: start: 20200413, end: 202111
  2. SIROLIMUS [Suspect]
     Active Substance: SIROLIMUS
     Indication: Lymphatic malformation
     Dosage: 4 MG,1 D
     Route: 048
     Dates: start: 202111, end: 20241117
  3. SIROLIMUS [Suspect]
     Active Substance: SIROLIMUS
     Dosage: 4 MG, 1 D
     Route: 048
     Dates: start: 20240118, end: 20240521
  4. SIROLIMUS [Suspect]
     Active Substance: SIROLIMUS
     Dosage: 3 MG,1 D
     Route: 048
     Dates: start: 20240522, end: 20240702
  5. SIROLIMUS [Suspect]
     Active Substance: SIROLIMUS
     Dosage: 1.5 MG,1 D
     Route: 048
     Dates: start: 20240702, end: 20240703
  6. SIROLIMUS [Suspect]
     Active Substance: SIROLIMUS
     Dosage: 2 MG,1 D
     Route: 048
     Dates: start: 20240722
  7. SIROLIMUS [Suspect]
     Active Substance: SIROLIMUS
     Dosage: 2 MG, 1 D
     Route: 048
     Dates: start: 20240723, end: 20240902
  8. SIROLIMUS [Suspect]
     Active Substance: SIROLIMUS
     Indication: Klippel-Trenaunay syndrome
     Dosage: 1 MG IN 1 DAY
     Route: 048
     Dates: start: 20240903
  9. SIROLIMUS [Suspect]
     Active Substance: SIROLIMUS
     Indication: Lymphatic malformation
  10. VINCRISTINE SULFATE [Concomitant]
     Active Substance: VINCRISTINE SULFATE
     Dosage: UNK
     Route: 065
  11. SULFAMETHOXAZOLE\TRIMETHOPRIM [Concomitant]
     Active Substance: SULFAMETHOXAZOLE\TRIMETHOPRIM
     Route: 048
  12. DEFERASIROX [Concomitant]
     Active Substance: DEFERASIROX
     Route: 048
  13. FAMOTIDINE [Concomitant]
     Active Substance: FAMOTIDINE
     Route: 048
  14. TRANSAMIN [Concomitant]
     Active Substance: TRANEXAMIC ACID
     Route: 048
  15. CARBOCYSTEINE [Concomitant]
     Active Substance: CARBOCYSTEINE
     Route: 048
  16. MIYA-BM [Concomitant]
     Active Substance: CLOSTRIDIUM BUTYRICUM SPORES STRAIN M-55
     Route: 048
  17. HERBALS [Concomitant]
     Active Substance: HERBALS
     Route: 048
  18. HERBALS [Concomitant]
     Active Substance: HERBALS
  19. TIZANIDINE [Concomitant]
     Active Substance: TIZANIDINE
     Route: 048
  20. MOVICOL [Concomitant]
     Active Substance: POLYETHYLENE GLYCOL 3350\POTASSIUM CHLORIDE\SODIUM BICARBONATE\SODIUM CHLORIDE
     Route: 048

REACTIONS (12)
  - Extradural haematoma [Unknown]
  - Orbital haematoma [Unknown]
  - Nephrotic syndrome [Recovering/Resolving]
  - COVID-19 [Recovered/Resolved]
  - Rhinovirus infection [Recovered/Resolved]
  - Pneumonia bacterial [Recovered/Resolved]
  - Dysphagia [Unknown]
  - Hypertension [Recovered/Resolved]
  - Drug level increased [Recovered/Resolved]
  - Wrong technique in product usage process [Unknown]
  - Off label use [Unknown]
  - Off label use [Unknown]

NARRATIVE: CASE EVENT DATE: 20211101
